FAERS Safety Report 15868204 (Version 3)
Quarter: 2019Q1

REPORT INFORMATION
  Report Type: Spontaneous
  Country: PT (occurrence: ES)
  Receive Date: 20190125
  Receipt Date: 20190125
  Transmission Date: 20190417
  Serious: Yes (Death, Hospitalization, Other)
  Sender: FDA-Public Use
  Company Number: PHHY2019ES014930

PATIENT
  Age: 43 Year
  Sex: Male

DRUGS (4)
  1. TACROLIMUS. [Suspect]
     Active Substance: TACROLIMUS
     Indication: LUNG TRANSPLANT
     Dosage: UNK
     Route: 065
  2. PREDNISOLONE. [Suspect]
     Active Substance: PREDNISOLONE
     Indication: LUNG TRANSPLANT
     Dosage: UNK
     Route: 065
  3. MYCOPHENOLATE MOFETIL. [Suspect]
     Active Substance: MYCOPHENOLATE MOFETIL
     Indication: LUNG TRANSPLANT
     Dosage: UNK
     Route: 065
  4. SILICA [Suspect]
     Active Substance: SILICON DIOXIDE
     Indication: PRODUCT USED FOR UNKNOWN INDICATION
     Dosage: UNK
     Route: 065

REACTIONS (11)
  - Product use in unapproved indication [Fatal]
  - Metastasis [Fatal]
  - Squamous cell carcinoma [Fatal]
  - Lung adenocarcinoma [Fatal]
  - Haemoptysis [Fatal]
  - Death [Fatal]
  - Lung neoplasm malignant [Fatal]
  - Respiratory failure [Fatal]
  - Lung abscess [Fatal]
  - Squamous cell carcinoma of lung [Fatal]
  - Transplant rejection [Fatal]

NARRATIVE: CASE EVENT DATE: 201504
